FAERS Safety Report 19399755 (Version 1)
Quarter: 2021Q2

REPORT INFORMATION
  Report Type: Report from Study
  Country: None (occurrence: BR)
  Receive Date: 20210610
  Receipt Date: 20210610
  Transmission Date: 20210717
  Serious: Yes (Hospitalization, Other)
  Sender: FDA-Public Use
  Company Number: BR-ABBVIE-21P-020-3942273-00

PATIENT
  Sex: Male
  Weight: 81 kg

DRUGS (3)
  1. LITHIUM. [Concomitant]
     Active Substance: LITHIUM
     Indication: BIPOLAR DISORDER
     Dosage: DAILY DOSE: 300 MG, ONCE A DAY
     Route: 048
  2. VALPROIC ACID. [Concomitant]
     Active Substance: VALPROIC ACID
     Indication: BIPOLAR DISORDER
     Dosage: DAILY DOSE: 1500 MG (ONE TABLET IN THE MORNING AND TWO AT NIGHT)
     Route: 048
  3. DEPAKOTE ER [Suspect]
     Active Substance: DIVALPROEX SODIUM
     Indication: BIPOLAR DISORDER
     Dosage: DOSE INCREASED, ON 03?JUN?2021, DEPAKOTE 500 MG WILL BE STARTED 3 TIMES PER DAY
     Route: 048

REACTIONS (6)
  - Sleep disorder [Unknown]
  - Therapy change [Unknown]
  - Off label use [Unknown]
  - Irritability [Unknown]
  - Treatment noncompliance [Unknown]
  - Gastrointestinal carcinoma [Recovering/Resolving]
